FAERS Safety Report 5604271-5 (Version None)
Quarter: 2008Q1

REPORT INFORMATION
  Report Type: 
  Country: None (occurrence: None)
  Receive Date: 20080123
  Receipt Date: 20080114
  Transmission Date: 20080703
  Serious: Yes (Hospitalization)
  Sender: FDA-Public Use
  Company Number: 08-000083

PATIENT
  Age: 53 Year
  Sex: Female

DRUGS (1)
  1. FEMRING [Suspect]
     Indication: MENOPAUSAL SYMPTOMS
     Dosage: 0.05MG, QD, ORAL
     Route: 067
     Dates: start: 20060101

REACTIONS (3)
  - ENDOMETRIAL DISORDER [None]
  - OVARIAN CYST [None]
  - VAGINAL CANDIDIASIS [None]
